FAERS Safety Report 24727409 (Version 3)
Quarter: 2025Q1

REPORT INFORMATION
  Report Type: Spontaneous
  Country: US (occurrence: US)
  Receive Date: 20241212
  Receipt Date: 20250127
  Transmission Date: 20250408
  Serious: Yes (Death, Hospitalization)
  Sender: PFIZER
  Company Number: US-PFIZER INC-202400323713

PATIENT
  Age: 75 Year
  Sex: Male

DRUGS (1)
  1. XELJANZ XR [Suspect]
     Active Substance: TOFACITINIB CITRATE
     Dosage: 11 MG, DAILY
     Route: 048

REACTIONS (3)
  - Death [Fatal]
  - Bone abscess [Unknown]
  - Osteomyelitis [Unknown]

NARRATIVE: CASE EVENT DATE: 20240101
